FAERS Safety Report 8515384-2 (Version None)
Quarter: 2012Q3

REPORT INFORMATION
  Report Type: 
  Country: None (occurrence: None)
  Receive Date: 20120717
  Receipt Date: 20120713
  Transmission Date: 20120928
  Serious: Yes (Other)
  Sender: FDA-Public Use
  Company Number: US-BAYER-2012-070508

PATIENT

DRUGS (1)
  1. GADAVIST [Suspect]

REACTIONS (4)
  - OROPHARYNGEAL DISCOMFORT [None]
  - NAUSEA [None]
  - CONJUNCTIVITIS [None]
  - COUGH [None]
